FAERS Safety Report 8453758-9 (Version None)
Quarter: 2012Q2

REPORT INFORMATION
  Report Type: 
  Country: None (occurrence: None)
  Receive Date: 20120620
  Receipt Date: 20120611
  Transmission Date: 20120825
  Serious: Yes (Other)
  Sender: FDA-Public Use
  Company Number: US-ASTRAZENECA-2012SE39215

PATIENT
  Age: 69 Year
  Sex: Male
  Weight: 102.1 kg

DRUGS (3)
  1. SOMA [Concomitant]
  2. ERYTHROMYCIN [Concomitant]
     Indication: ENDODONTIC PROCEDURE
  3. CRESTOR [Suspect]
     Indication: LOW DENSITY LIPOPROTEIN
     Route: 048
     Dates: start: 20090101

REACTIONS (4)
  - RENAL IMPAIRMENT [None]
  - CEREBRAL SMALL VESSEL ISCHAEMIC DISEASE [None]
  - AMNESIA [None]
  - ARRHYTHMIA [None]
